FAERS Safety Report 24039405 (Version 3)
Quarter: 2025Q1

REPORT INFORMATION
  Report Type: Report from Study
  Country: US (occurrence: US)
  Receive Date: 20240702
  Receipt Date: 20250312
  Transmission Date: 20250409
  Serious: Yes (Death, Hospitalization, Other)
  Sender: AMNEAL
  Company Number: US-AMNEAL PHARMACEUTICALS-2024-AMRX-02346

PATIENT
  Age: 76 Year
  Sex: Male

DRUGS (1)
  1. CARBIDOPA\LEVODOPA [Suspect]
     Active Substance: CARBIDOPA\LEVODOPA
     Indication: Product used for unknown indication
     Dosage: (61.25-245MG) TAKE 3 CAPSULES BY MOUTH THREE TIMES A DAY
     Route: 048

REACTIONS (6)
  - Death [Fatal]
  - Hip fracture [Unknown]
  - Influenza [Unknown]
  - Feeling abnormal [Unknown]
  - Somnolence [Unknown]
  - Treatment noncompliance [Unknown]

NARRATIVE: CASE EVENT DATE: 20231226
